FAERS Safety Report 10983214 (Version 2)
Quarter: 2015Q2

REPORT INFORMATION
  Report Type: Spontaneous
  Country: IT (occurrence: IT)
  Receive Date: 20150403
  Receipt Date: 20150629
  Transmission Date: 20150821
  Serious: Yes (Hospitalization)
  Sender: FDA-Public Use
  Company Number: IT-PFIZER INC-2015112948

PATIENT
  Age: 62 Year
  Sex: Male

DRUGS (1)
  1. SILDENAFIL CITRATE. [Suspect]
     Active Substance: SILDENAFIL CITRATE
     Dosage: 1 DF, TOTAL
     Route: 048
     Dates: start: 20140130, end: 20140130

REACTIONS (1)
  - Acute coronary syndrome [Not Recovered/Not Resolved]

NARRATIVE: CASE EVENT DATE: 20141030
